FAERS Safety Report 7397981-3 (Version None)
Quarter: 2011Q2

REPORT INFORMATION
  Report Type: 
  Country: None (occurrence: None)
  Receive Date: 20110406
  Receipt Date: 20110324
  Transmission Date: 20111010
  Serious: Yes (Hospitalization)
  Sender: FDA-Public Use
  Company Number: PHHY2011CZ25960

PATIENT
  Age: 47 Year
  Sex: Male

DRUGS (4)
  1. CLONAZEPAM [Suspect]
     Indication: SCHIZOPHRENIA, PARANOID TYPE
     Dosage: 1.5 MG, UNK
  2. CLOZAPINE [Suspect]
     Dosage: 400 MG, UNK
  3. CLOZAPINE [Suspect]
     Indication: SCHIZOPHRENIA, PARANOID TYPE
     Dosage: 300 MG, UNK
  4. LEVOMEPROMAZINE [Suspect]
     Indication: SCHIZOPHRENIA, PARANOID TYPE
     Dosage: 200 MG, UNK

REACTIONS (6)
  - ILEUS PARALYTIC [None]
  - DECREASED APPETITE [None]
  - CONSTIPATION [None]
  - ABDOMINAL DISTENSION [None]
  - PARANOIA [None]
  - COGNITIVE DISORDER [None]
